FAERS Safety Report 4931785-3 (Version None)
Quarter: 2006Q1

REPORT INFORMATION
  Report Type: 
  Country: None (occurrence: None)
  Receive Date: 20060303
  Receipt Date: 20060223
  Transmission Date: 20060701
  Serious: Yes (Death, Life-Threatening)
  Sender: FDA-Public Use
  Company Number: JP-JNJFOC-20060205403

PATIENT
  Age: 85 Year
  Sex: Female

DRUGS (3)
  1. TAVANIC [Suspect]
     Indication: DRUG USE FOR UNKNOWN INDICATION
  2. FLECAINIDE ACETATE [Concomitant]
  3. DIGITALIS [Concomitant]

REACTIONS (5)
  - CARDIAC ARREST [None]
  - MULTI-ORGAN FAILURE [None]
  - TORSADE DE POINTES [None]
  - VENTRICULAR FIBRILLATION [None]
  - VENTRICULAR TACHYCARDIA [None]
